FAERS Safety Report 19570077 (Version 1)
Quarter: 2021Q3

REPORT INFORMATION
  Report Type: Report from Study
  Country: US (occurrence: US)
  Receive Date: 20210715
  Receipt Date: 20210715
  Transmission Date: 20211014
  Serious: Yes (Life-Threatening, Hospitalization)
  Sender: FDA-Public Use
  Company Number: US-CELGENEUS-USA-20210703051

PATIENT
  Age: 83 Year
  Sex: Male

DRUGS (1)
  1. BREYANZI [Suspect]
     Active Substance: LISOCABTAGENE MARALEUCEL
     Indication: NON-HODGKIN^S LYMPHOMA
     Route: 041
     Dates: start: 20210607, end: 20210607

REACTIONS (4)
  - Platelet count decreased [Unknown]
  - Blood magnesium decreased [Unknown]
  - Cytokine release syndrome [Unknown]
  - Full blood count decreased [Unknown]

NARRATIVE: CASE EVENT DATE: 20210708
